FAERS Safety Report 5427643-0 (Version None)
Quarter: 2007Q3

REPORT INFORMATION
  Report Type: 
  Country: None (occurrence: None)
  Receive Date: 20070828
  Receipt Date: 20070828
  Transmission Date: 20080115
  Serious: Yes (Other)
  Sender: FDA-Public Use
  Company Number: A0676606A

PATIENT
  Age: 63 Year
  Sex: Female

DRUGS (1)
  1. ALLI [Suspect]
     Route: 048
     Dates: start: 20070708, end: 20070820

REACTIONS (4)
  - BEDRIDDEN [None]
  - MALAISE [None]
  - RECTAL HAEMORRHAGE [None]
  - RENAL PAIN [None]
